FAERS Safety Report 18400848 (Version 2)
Quarter: 2020Q4

REPORT INFORMATION
  Report Type: Spontaneous
  Country: US (occurrence: US)
  Receive Date: 20201020
  Receipt Date: 20201223
  Transmission Date: 20210114
  Serious: Yes (Other)
  Sender: FDA-Public Use
  Company Number: US-BIOGEN-2020BI00933144

PATIENT
  Age: 67 Year
  Sex: Female

DRUGS (2)
  1. TYSABRI [Suspect]
     Active Substance: NATALIZUMAB
     Indication: MULTIPLE SCLEROSIS
     Dosage: INFUSED OVER 1 HOUR
     Route: 042
     Dates: start: 201808
  2. TYSABRI [Suspect]
     Active Substance: NATALIZUMAB
     Route: 065
     Dates: start: 20140417, end: 20200901

REACTIONS (20)
  - Diplopia [Unknown]
  - Urinary tract infection [Unknown]
  - Eosinophil count increased [Unknown]
  - Albumin globulin ratio increased [Unknown]
  - Blood chloride increased [Unknown]
  - Red blood cell nucleated morphology present [Unknown]
  - Balance disorder [Unknown]
  - Asthenia [Unknown]
  - Ophthalmic herpes zoster [Unknown]
  - Hypoaesthesia [Unknown]
  - Vitamin B12 increased [Unknown]
  - Initial insomnia [Unknown]
  - Dizziness [Unknown]
  - Burning sensation [Unknown]
  - Paraesthesia [Unknown]
  - Eye pain [Unknown]
  - Infection [Unknown]
  - Tinnitus [Unknown]
  - Renal disorder [Unknown]
  - Lymphocyte count increased [Unknown]

NARRATIVE: CASE EVENT DATE: 202002
